FAERS Safety Report 9908165 (Version 1)
Quarter: 2014Q1

REPORT INFORMATION
  Report Type: Spontaneous
  Country: US (occurrence: None)
  Receive Date: 20140212
  Receipt Date: 20140212
  Transmission Date: 20141002
  Serious: Yes (Other)
  Sender: FDA-Public Use
  Company Number: None

PATIENT
  Age: 70 Year
  Sex: Male
  Weight: 73.94 kg

DRUGS (13)
  1. ALFUZOSIN HYDROCHLORIDE ER [Suspect]
     Indication: PROSTATOMEGALY
     Route: 048
     Dates: start: 20131213
  2. AVODART [Suspect]
     Indication: PROSTATOMEGALY
  3. CARVEDILOL [Concomitant]
  4. CRESTOR [Concomitant]
  5. ALFUZOSIN HCL ER [Concomitant]
  6. AMLODIPINE BESYLATE [Concomitant]
  7. CLOPIDOGREL [Concomitant]
  8. TRAZODONE [Concomitant]
  9. L-THEANINE [Concomitant]
  10. MIRALAX [Concomitant]
  11. POLYETHYLENE CLYCOL [Concomitant]
  12. POWDER FOR SOLUTION [Concomitant]
  13. OS MOTIC LAXATIVE [Concomitant]

REACTIONS (11)
  - Eye pruritus [None]
  - Lacrimation increased [None]
  - Penis disorder [None]
  - Penile swelling [None]
  - Testicular atrophy [None]
  - Constipation [None]
  - Dyspepsia [None]
  - Product substitution issue [None]
  - Vision blurred [None]
  - Dyspnoea [None]
  - Penile size reduced [None]
